FAERS Safety Report 9155110 (Version 1)
Quarter: 2013Q1

REPORT INFORMATION
  Report Type: Report from Study
  Country: US (occurrence: US)
  Receive Date: 20130311
  Receipt Date: 20130311
  Transmission Date: 20140127
  Serious: No
  Sender: FDA-Public Use
  Company Number: US-ABBOTT-12P-163-0921433-00

PATIENT
  Sex: Female
  Weight: 88.08 kg

DRUGS (4)
  1. LUPRON DEPOT 11.25 MG [Suspect]
     Indication: UTERINE LEIOMYOMA
     Dates: start: 201110
  2. UNKNOWN MEDICATION [Concomitant]
     Indication: BLOOD PRESSURE
  3. VITAMIN B12 [Concomitant]
     Indication: VITAMIN SUPPLEMENTATION
  4. IRON [Concomitant]
     Indication: MINERAL SUPPLEMENTATION

REACTIONS (4)
  - Arthralgia [Recovering/Resolving]
  - Bedridden [Recovered/Resolved]
  - Injection site pain [Recovered/Resolved]
  - Injection site induration [Recovered/Resolved]
